FAERS Safety Report 7836318-X (Version None)
Quarter: 2011Q4

REPORT INFORMATION
  Report Type: 
  Country: None (occurrence: None)
  Receive Date: 20111024
  Receipt Date: 20110211
  Transmission Date: 20120403
  Serious: No
  Sender: FDA-Public Use
  Company Number: US-ABBOTT-11P-163-0705083-00

PATIENT
  Sex: Female
  Weight: 93.07 kg

DRUGS (5)
  1. ADD BACK THERAPY [Concomitant]
     Indication: ENDOMETRIOSIS
     Dates: start: 20100401, end: 20110211
  2. ACIPHEX [Concomitant]
     Indication: GASTROOESOPHAGEAL REFLUX DISEASE
  3. VICODIN [Suspect]
     Indication: MIGRAINE
     Dates: start: 20110101
  4. LOW DOSE CONJUGATED ESTROGEN [Concomitant]
     Indication: ENDOMETRIOSIS
     Dates: start: 20100401, end: 20110211
  5. LUPRON DEPOT [Suspect]
     Indication: ENDOMETRIOSIS
     Dates: start: 20100401

REACTIONS (5)
  - HEADACHE [None]
  - HYPERACUSIS [None]
  - WEIGHT INCREASED [None]
  - MIGRAINE [None]
  - PHOTOPHOBIA [None]
